FAERS Safety Report 13362247 (Version 2)
Quarter: 2017Q2

REPORT INFORMATION
  Report Type: Spontaneous
  Country: US (occurrence: US)
  Receive Date: 20170323
  Receipt Date: 20170427
  Transmission Date: 20170830
  Serious: No
  Sender: FDA-Public Use
  Company Number: US-GLAXOSMITHKLINE-US2017039840

PATIENT

DRUGS (1)
  1. TRANSDERM SCOP [Suspect]
     Active Substance: SCOPOLAMINE
     Indication: SPUTUM INCREASED
     Dosage: UNK

REACTIONS (3)
  - Off label use [Unknown]
  - Hyperhidrosis [Unknown]
  - Product quality issue [Unknown]
